FAERS Safety Report 4285605-3 (Version None)
Quarter: 2004Q1

REPORT INFORMATION
  Report Type: 
  Country: None (occurrence: None)
  Receive Date: 20040203
  Receipt Date: 20040123
  Transmission Date: 20041129
  Serious: Yes (Hospitalization)
  Sender: FDA-Public Use
  Company Number: 04P-163-0248667-00

PATIENT
  Age: 66 Year
  Sex: Female

DRUGS (3)
  1. HUMIRA [Suspect]
     Dosage: 40 MG, SUBCUTANEOUS
     Route: 058
     Dates: start: 20030901, end: 20031001
  2. ETANERCEPT [Suspect]
     Dosage: 150 MG CUMULATIVE DOSE
     Dates: start: 20031001
  3. LEFLUNOMIDE [Concomitant]

REACTIONS (1)
  - BREAST HAEMORRHAGE [None]
